FAERS Safety Report 21938726 (Version 1)
Quarter: 2023Q1

REPORT INFORMATION
  Report Type: Spontaneous
  Country: AT (occurrence: AT)
  Receive Date: 20230201
  Receipt Date: 20230201
  Transmission Date: 20230417
  Serious: Yes (Death)
  Sender: FDA-Public Use
  Company Number: AT-EXELIXIS-CABO-22049906

PATIENT
  Age: 61 Year
  Sex: Male

DRUGS (4)
  1. CABOMETYX [Suspect]
     Active Substance: CABOZANTINIB S-MALATE
     Indication: Hepatocellular carcinoma
     Dosage: UNK
  2. SORAFENIB [Suspect]
     Active Substance: SORAFENIB
     Indication: Hepatocellular carcinoma
     Dosage: UNK
  3. LENVATINIB [Suspect]
     Active Substance: LENVATINIB
     Indication: Hepatocellular carcinoma
     Dosage: UNK
  4. REGORAFENIB [Suspect]
     Active Substance: REGORAFENIB
     Indication: Hepatocellular carcinoma
     Dosage: UNK

REACTIONS (1)
  - Malignant neoplasm progression [Fatal]
